FAERS Safety Report 5034276-7 (Version None)
Quarter: 2006Q2

REPORT INFORMATION
  Report Type: 
  Country: None (occurrence: None)
  Receive Date: 20060621
  Receipt Date: 20060601
  Transmission Date: 20061013
  Serious: Yes (Hospitalization)
  Sender: FDA-Public Use
  Company Number: 2540

PATIENT
  Age: 65 Year
  Sex: Female

DRUGS (4)
  1. AMNESTEEM [Suspect]
     Indication: ACNE
     Dosage: 20 MG, QD, PO
     Route: 048
     Dates: start: 20060401, end: 20060501
  2. LEVOTHYROXINE SODIUM [Concomitant]
  3. AMLODIPINE [Concomitant]
  4. BENAZEPRIL HYDROCHLORIDE [Concomitant]

REACTIONS (2)
  - BLOOD CHOLESTEROL INCREASED [None]
  - BLOOD PRESSURE INCREASED [None]
